FAERS Safety Report 15207061 (Version 4)
Quarter: 2018Q4

REPORT INFORMATION
  Report Type: Report from Study
  Country: CA (occurrence: CA)
  Receive Date: 20180727
  Receipt Date: 20181119
  Transmission Date: 20190204
  Serious: Yes (Death, Hospitalization, Other)
  Sender: FDA-Public Use
  Company Number: CA-GLAXOSMITHKLINE-CA2018GSK133220

PATIENT
  Age: 57 Year
  Sex: Male
  Weight: 98 kg

DRUGS (1)
  1. MEPOLIZUMAB [Suspect]
     Active Substance: MEPOLIZUMAB
     Indication: ASTHMA
     Dosage: 100 MG, Z
     Route: 042

REACTIONS (35)
  - Respiratory tract infection bacterial [Unknown]
  - Staphylococcal infection [Unknown]
  - Myocardial fibrosis [Unknown]
  - Chronic obstructive pulmonary disease [Unknown]
  - Arteriosclerosis coronary artery [Unknown]
  - Organising pneumonia [Fatal]
  - Pneumoconiosis [Unknown]
  - Pneumothorax [Unknown]
  - Multifocal micronodular pneumocyte hyperplasia [Unknown]
  - Arteriosclerosis [Unknown]
  - Emphysema [Unknown]
  - Pneumonia [Unknown]
  - Coronary artery disease [Fatal]
  - Angiopathy [Unknown]
  - Shock [Unknown]
  - Diffuse alveolar damage [Unknown]
  - Lung disorder [Unknown]
  - Myalgia [Unknown]
  - Hypotension [Unknown]
  - Oedema [Unknown]
  - Muscle necrosis [Unknown]
  - Arrhythmia [Unknown]
  - Lymphocytic infiltration [Unknown]
  - Productive cough [Unknown]
  - Dyspnoea [Unknown]
  - Exostosis [Unknown]
  - Pulmonary embolism [Unknown]
  - Lung consolidation [Unknown]
  - Hypertensive heart disease [Unknown]
  - Cardiac arrest [Fatal]
  - Respiratory disorder [Unknown]
  - Coronary artery disease [Unknown]
  - Fatigue [Unknown]
  - Chest X-ray abnormal [Unknown]
  - Left ventricular hypertrophy [Unknown]

NARRATIVE: CASE EVENT DATE: 20180630
